FAERS Safety Report 15261976 (Version 1)
Quarter: 2018Q3

REPORT INFORMATION
  Report Type: Spontaneous
  Country: GR (occurrence: GR)
  Receive Date: 20180809
  Receipt Date: 20180809
  Transmission Date: 20181010
  Serious: Yes (Other)
  Sender: FDA-Public Use
  Company Number: PHHY2018GR067691

PATIENT
  Age: 65 Year
  Sex: Male
  Weight: 87 kg

DRUGS (2)
  1. CRESTOR [Suspect]
     Active Substance: ROSUVASTATIN CALCIUM
     Indication: HYPERLIPIDAEMIA
     Dosage: 10 MG, UNK
     Route: 048
  2. ATORVASTATIN [Suspect]
     Active Substance: ATORVASTATIN
     Indication: HYPERLIPIDAEMIA
     Dosage: 20 MG, UNK
     Route: 048

REACTIONS (3)
  - Drug intolerance [Unknown]
  - Myalgia [Unknown]
  - Myopathy [Unknown]

NARRATIVE: CASE EVENT DATE: 2014
